FAERS Safety Report 5170338-1 (Version None)
Quarter: 2006Q4

REPORT INFORMATION
  Report Type: 
  Country: None (occurrence: None)
  Receive Date: 20061204
  Receipt Date: 20061120
  Transmission Date: 20070319
  Serious: Yes (Life-Threatening)
  Sender: FDA-Public Use
  Company Number: IT-2006-035697

PATIENT
  Age: 69 Year
  Sex: Male

DRUGS (3)
  1. ULTRAVIST 300 [Suspect]
     Indication: COMPUTERISED TOMOGRAM
     Dosage: 130 ML, 1 DOSE, INTRAVENOUS
     Route: 042
     Dates: start: 20061113, end: 20061113
  2. GASTROGRAFIN [Concomitant]
  3. XELODA [Concomitant]

REACTIONS (8)
  - BRADYCARDIA [None]
  - COMA [None]
  - CYANOSIS [None]
  - DIFFUSE ALVEOLAR DAMAGE [None]
  - HYPOTENSION [None]
  - LOSS OF CONSCIOUSNESS [None]
  - PULMONARY OEDEMA [None]
  - SHOCK [None]
